FAERS Safety Report 7157153-4 (Version None)
Quarter: 2010Q4

REPORT INFORMATION
  Report Type: 
  Country: None (occurrence: None)
  Receive Date: 20101214
  Receipt Date: 20091217
  Transmission Date: 20110411
  Serious: No
  Sender: FDA-Public Use
  Company Number: US-ASTRAZENECA-2009SE32603

PATIENT
  Age: 891 Month
  Sex: Female

DRUGS (5)
  1. CRESTOR [Suspect]
     Route: 048
     Dates: start: 20091201, end: 20091201
  2. DIAVAN [Concomitant]
  3. COREG [Concomitant]
  4. ZETIA [Concomitant]
  5. SERTRALINE HYDROCHLORIDE [Concomitant]

REACTIONS (2)
  - ABASIA [None]
  - MUSCLE SPASMS [None]
